FAERS Safety Report 12709932 (Version 1)
Quarter: 2016Q3

REPORT INFORMATION
  Report Type: Report from Study
  Country: US (occurrence: US)
  Receive Date: 20160902
  Receipt Date: 20160902
  Transmission Date: 20161109
  Serious: Yes (Hospitalization, Other)
  Sender: FDA-Public Use
  Company Number: US-ABBVIE-16K-163-1711354-00

PATIENT
  Age: 73 Year
  Sex: Female
  Weight: 76.73 kg

DRUGS (3)
  1. HUMIRA [Suspect]
     Active Substance: ADALIMUMAB
     Indication: RHEUMATOID ARTHRITIS
     Dosage: TWO WEEKS LATER
     Route: 058
  2. HUMIRA [Suspect]
     Active Substance: ADALIMUMAB
     Dosage: TWO WEEKS LATER
     Route: 058
  3. HUMIRA [Suspect]
     Active Substance: ADALIMUMAB
     Indication: CROHN^S DISEASE
     Route: 058

REACTIONS (8)
  - Musculoskeletal pain [Recovering/Resolving]
  - Fall [Recovered/Resolved]
  - Rotator cuff syndrome [Recovered/Resolved]
  - Small intestinal obstruction [Recovered/Resolved]
  - Musculoskeletal pain [Recovering/Resolving]
  - Decreased appetite [Not Recovered/Not Resolved]
  - Small intestinal obstruction [Recovered/Resolved]
  - Osteoarthritis [Recovered/Resolved]

NARRATIVE: CASE EVENT DATE: 2015
